FAERS Safety Report 6944475-2 (Version None)
Quarter: 2010Q3

REPORT INFORMATION
  Report Type: 
  Country: None (occurrence: None)
  Receive Date: 20100827
  Receipt Date: 20100817
  Transmission Date: 20110219
  Serious: Yes (Hospitalization)
  Sender: FDA-Public Use
  Company Number: FR-PFIZER INC-2010102998

PATIENT
  Age: 71 Year
  Sex: Male

DRUGS (6)
  1. NEURONTIN [Suspect]
     Indication: PAIN
     Dosage: UNK
     Route: 048
     Dates: start: 20090501, end: 20090520
  2. LIDOCAINE [Concomitant]
     Dosage: UNK
     Route: 062
     Dates: start: 20090519
  3. RIVOTRIL [Concomitant]
     Dosage: UNK
     Route: 048
     Dates: start: 20090501
  4. EFFERALGAN CODEINE [Concomitant]
     Dosage: UNK
     Route: 048
     Dates: start: 20090501
  5. COMBIVIR [Concomitant]
     Indication: ACQUIRED IMMUNODEFICIENCY SYNDROME
     Dosage: 1 DF, 2X/DAY
     Route: 048
     Dates: start: 20021001
  6. KALETRA [Concomitant]
     Dosage: 3 DF, 2X/DAY
     Route: 048
     Dates: start: 20021001

REACTIONS (3)
  - CYTOLYTIC HEPATITIS [None]
  - HEPATIC ENZYME INCREASED [None]
  - HEPATITIS CHOLESTATIC [None]
